FAERS Safety Report 7407315-3 (Version None)
Quarter: 2011Q2

REPORT INFORMATION
  Report Type: 
  Country: None (occurrence: None)
  Receive Date: 20110411
  Receipt Date: 20110328
  Transmission Date: 20111010
  Serious: Yes (Death, Other)
  Sender: FDA-Public Use
  Company Number: JP-CELGENEUS-087-21880-11021708

PATIENT
  Sex: Male

DRUGS (23)
  1. LENADEX [Suspect]
     Dosage: 40 MILLIGRAM
     Route: 048
     Dates: start: 20110107, end: 20110107
  2. GASMOTIN [Concomitant]
     Dosage: 15 MILLIGRAM
     Route: 048
     Dates: start: 20101209, end: 20110107
  3. LASIX [Concomitant]
     Dosage: 40 MILLIGRAM
     Route: 048
     Dates: start: 20101209, end: 20101215
  4. JUVELA N [Concomitant]
     Dosage: 300 MILLIGRAM
     Route: 048
     Dates: start: 20101209, end: 20110107
  5. REVLIMID [Suspect]
     Indication: MYELOMA RECURRENCE
     Dosage: 25 MILLIGRAM
     Route: 048
     Dates: start: 20101209, end: 20101229
  6. METLIGINE [Concomitant]
     Dosage: 8 MILLIGRAM
     Route: 048
     Dates: start: 20101209, end: 20110107
  7. LASIX [Concomitant]
     Dosage: 40 MILLIGRAM
     Route: 048
     Dates: start: 20101224, end: 20110107
  8. LENADEX [Suspect]
     Indication: MYELOMA RECURRENCE
     Dosage: 40 MILLIGRAM
     Route: 048
     Dates: start: 20101209, end: 20101212
  9. METHYCOBAL [Concomitant]
     Dosage: 1500 MICROGRAM
     Route: 048
     Dates: start: 20101209, end: 20110107
  10. BIOFERMIN R [Concomitant]
     Dosage: 3 TABLET
     Route: 048
     Dates: start: 20101209, end: 20110107
  11. NITRODERM [Concomitant]
     Dosage: 25 MILLIGRAM
     Route: 062
     Dates: start: 20101209, end: 20110107
  12. ASPIRIN [Concomitant]
     Indication: PROPHYLAXIS
     Dosage: 1 TABLET
     Route: 048
     Dates: start: 20101214, end: 20110107
  13. REVLIMID [Suspect]
     Dosage: 25 MILLIGRAM
     Route: 048
     Dates: start: 20110107, end: 20110107
  14. GABALON [Concomitant]
     Dosage: 15 MILLIGRAM
     Route: 048
     Dates: start: 20101209, end: 20110107
  15. GOSHA-JINKI-GAN [Concomitant]
     Dosage: 7.5 GRAM
     Route: 048
     Dates: start: 20101209, end: 20110107
  16. URSO 250 [Concomitant]
     Dosage: 300 MILLIGRAM
     Route: 048
     Dates: start: 20110107, end: 20110107
  17. ALDACTONE [Concomitant]
     Dosage: 50 MILLIGRAM
     Route: 048
     Dates: start: 20101209, end: 20110107
  18. GASTER D [Concomitant]
     Indication: PROPHYLAXIS
     Dosage: 40 MILLIGRAM
     Route: 048
     Dates: start: 20101209, end: 20110107
  19. HACHIMI-JIO-GAN [Concomitant]
     Dosage: 7.5 GRAM
     Route: 048
     Dates: start: 20101209, end: 20110107
  20. LASIX [Concomitant]
     Dosage: 20 MILLIGRAM
     Route: 048
     Dates: start: 20101216, end: 20101223
  21. BAKTAR [Concomitant]
     Indication: PROPHYLAXIS
     Dosage: 2 TABLET
     Route: 048
     Dates: start: 20101209
  22. DIFLUCAN [Concomitant]
     Indication: PROPHYLAXIS
     Dosage: 200 MILLIGRAM
     Route: 048
     Dates: start: 20101220, end: 20110104
  23. GABAPEN [Concomitant]
     Dosage: 1200 MILLIGRAM
     Route: 048
     Dates: start: 20101209, end: 20110107

REACTIONS (4)
  - ENTEROCOLITIS [None]
  - VENTRICULAR FIBRILLATION [None]
  - DIARRHOEA [None]
  - CARDIAC FAILURE [None]
